FAERS Safety Report 15014214 (Version 2)
Quarter: 2018Q2

REPORT INFORMATION
  Report Type: Spontaneous
  Country: JP (occurrence: JP)
  Receive Date: 20180615
  Receipt Date: 20180621
  Transmission Date: 20180711
  Serious: Yes (Other)
  Sender: FDA-Public Use
  Company Number: PHJP2018JP012358

PATIENT

DRUGS (1)
  1. LETROZOLE. [Suspect]
     Active Substance: LETROZOLE
     Indication: MATERNAL EXPOSURE BEFORE PREGNANCY
     Dosage: UNK
     Route: 064

REACTIONS (2)
  - Arnold-Chiari malformation [Unknown]
  - Maternal exposure before pregnancy [Unknown]
